FAERS Safety Report 9729183 (Version 3)
Quarter: 2014Q3

REPORT INFORMATION
  Report Type: Spontaneous
  Country: US (occurrence: US)
  Receive Date: 20131204
  Receipt Date: 20140912
  Transmission Date: 20150326
  Serious: Yes (Life-Threatening, Hospitalization, Disabling)
  Sender: FDA-Public Use
  Company Number: US-BAYER-2013-147092

PATIENT
  Age: 24 Year
  Sex: Female
  Weight: 121.22 kg

DRUGS (13)
  1. FOLATE SODIUM [Concomitant]
     Active Substance: FOLATE SODIUM
  2. PERCOCET [Concomitant]
     Active Substance: ACETAMINOPHEN\OXYCODONE HYDROCHLORIDE
     Dosage: 5-325 MG AS NEEDED
  3. YASMIN [Suspect]
     Active Substance: DROSPIRENONE\ETHINYL ESTRADIOL
     Indication: CONTRACEPTION
     Dosage: UNK
     Dates: start: 20061218, end: 200907
  4. ZOCOR [Concomitant]
     Active Substance: SIMVASTATIN
  5. DILAUDID [Concomitant]
     Active Substance: HYDROMORPHONE HYDROCHLORIDE
  6. OPANA [Concomitant]
     Active Substance: OXYMORPHONE HYDROCHLORIDE
     Dosage: 5 MG, 10 MG
  7. HYDROCODONE BIT/APAP [Concomitant]
     Active Substance: ACETAMINOPHEN\HYDROCODONE BITARTRATE
     Dosage: 10-500 MG
  8. YAZ [Suspect]
     Active Substance: DROSPIRENONE\ETHINYL ESTRADIOL
     Indication: CONTRACEPTION
     Dosage: UNK
     Dates: start: 20091005, end: 201009
  9. HYDROMORPHONE [Concomitant]
     Active Substance: HYDROMORPHONE
     Dosage: 4 MG, UNK
  10. ZARAH [Suspect]
     Active Substance: DROSPIRENONE\ETHINYL ESTRADIOL
  11. LEXAPRO [Concomitant]
     Active Substance: ESCITALOPRAM OXALATE
  12. IRON SULFATE [Concomitant]
     Active Substance: FERROUS SULFATE ANHYDROUS
  13. FLOVENT HFA [Concomitant]
     Active Substance: FLUTICASONE PROPIONATE
     Indication: ASTHMA
     Dosage: 110 MCG, TWO PUFFS TWICE A DAY ONCE IN A WHILE

REACTIONS (21)
  - Emotional distress [None]
  - General physical health deterioration [None]
  - Pain [None]
  - Aphasia [None]
  - Headache [None]
  - Nervous system disorder [None]
  - Anxiety [None]
  - Abasia [None]
  - Impaired work ability [None]
  - Adverse event [None]
  - Mental impairment [None]
  - Thrombosis [None]
  - Injury [None]
  - Anhedonia [None]
  - Hemiplegia [None]
  - Chest pain [None]
  - Pain in extremity [None]
  - Cholelithiasis [None]
  - Cerebrovascular accident [None]
  - Cerebral artery occlusion [Recovering/Resolving]
  - Cerebral infarction [None]

NARRATIVE: CASE EVENT DATE: 20120905
